FAERS Safety Report 12642470 (Version 3)
Quarter: 2016Q4

REPORT INFORMATION
  Report Type: Spontaneous
  Country: US (occurrence: US)
  Receive Date: 20160810
  Receipt Date: 20161020
  Transmission Date: 20170207
  Serious: Yes (Hospitalization)
  Sender: FDA-Public Use
  Company Number: US-CELGENEUS-USA-2016081708

PATIENT
  Age: 77 Year
  Sex: Female
  Weight: 59.84 kg

DRUGS (3)
  1. JAKAFI [Concomitant]
     Active Substance: RUXOLITINIB
     Indication: PRODUCT USED FOR UNKNOWN INDICATION
     Route: 065
  2. LASIX [Concomitant]
     Active Substance: FUROSEMIDE
     Indication: PRODUCT USED FOR UNKNOWN INDICATION
     Route: 065
  3. THALOMID [Suspect]
     Active Substance: THALIDOMIDE
     Indication: MYELOFIBROSIS
     Dosage: 50 MILLIGRAM
     Route: 048
     Dates: start: 20160316, end: 20161001

REACTIONS (6)
  - Aortic stenosis [Unknown]
  - Dyspnoea [Unknown]
  - Full blood count decreased [Unknown]
  - Haemoglobin decreased [Recovered/Resolved with Sequelae]
  - Platelet count decreased [Recovered/Resolved with Sequelae]
  - Pleural effusion [Unknown]

NARRATIVE: CASE EVENT DATE: 2016
